FAERS Safety Report 12844270 (Version 1)
Quarter: 2016Q4

REPORT INFORMATION
  Report Type: Spontaneous
  Country: US (occurrence: US)
  Receive Date: 20161012
  Receipt Date: 20161012
  Transmission Date: 20170207
  Serious: Yes (Other)
  Sender: FDA-Public Use
  Company Number: None

PATIENT
  Age: 79 Year
  Sex: Male
  Weight: 65.25 kg

DRUGS (5)
  1. SYNTHROID [Concomitant]
     Active Substance: LEVOTHYROXINE SODIUM
  2. CHLORHEXIDINE GLUCONATE 0.12 % [Suspect]
     Active Substance: CHLORHEXIDINE GLUCONATE
     Indication: TOOTH EXTRACTION
     Dosage: ?          OTHER STRENGTH:PINT (473 ML);QUANTITY:3.5 OUNCE(S);?
     Route: 048
     Dates: start: 20161006, end: 20161009
  3. BABY ASPIRIN [Concomitant]
     Active Substance: ASPIRIN
  4. MULTIVITAMIN [Concomitant]
     Active Substance: VITAMINS
  5. FISH OIL [Concomitant]
     Active Substance: FISH OIL

REACTIONS (4)
  - Tongue discomfort [None]
  - Tongue blistering [None]
  - Discomfort [None]
  - Glossodynia [None]

NARRATIVE: CASE EVENT DATE: 20161010
